FAERS Safety Report 4370932-1 (Version None)
Quarter: 2004Q2

REPORT INFORMATION
  Report Type: 
  Country: None (occurrence: None)
  Receive Date: 20040526
  Receipt Date: 20040516
  Transmission Date: 20050107
  Serious: No
  Sender: FDA-Public Use
  Company Number: B0333080A

PATIENT
  Age: 42 Year
  Sex: Male
  Weight: 101.2882 kg

DRUGS (2)
  1. NICODERM CQ [Suspect]
     Indication: EX-SMOKER
     Dosage: 21 MG/PER DAY/TRANSDERMAL
     Route: 062
     Dates: start: 20040419, end: 20040426
  2. VENLAFAXINE HCL [Concomitant]

REACTIONS (4)
  - APPLICATION SITE ERYTHEMA [None]
  - APPLICATION SITE PAIN [None]
  - APPLICATION SITE VESICLES [None]
  - RASH ERYTHEMATOUS [None]
